FAERS Safety Report 8854570 (Version 2)
Quarter: 2012Q4

REPORT INFORMATION
  Report Type: Report from Study
  Country: JP (occurrence: JP)
  Receive Date: 20121023
  Receipt Date: 20121228
  Transmission Date: 20130627
  Serious: Yes (Other)
  Sender: FDA-Public Use
  Company Number: JP-VERTEX PHARMACEUTICAL INC.-2012-023304

PATIENT
  Age: 51 Year
  Sex: Female

DRUGS (12)
  1. VX-950 (TELAPREVIR) [Suspect]
     Indication: CHRONIC HEPATITIS C
     Dosage: 1500 mg, qd
     Route: 048
     Dates: start: 20120424, end: 20120501
  2. VX-950 (TELAPREVIR) [Suspect]
     Dosage: 2250 mg, qd
     Route: 048
     Dates: start: 20120501, end: 20120722
  3. REBETOL [Suspect]
     Indication: CHRONIC HEPATITIS C
     Dosage: 400 mg, qd
     Route: 048
     Dates: start: 20120424, end: 20120514
  4. REBETOL [Suspect]
     Dosage: 200 mg, qd
     Route: 048
     Dates: start: 20120514, end: 20120819
  5. REBETOL [Suspect]
     Dosage: 400 mg, qd
     Route: 048
     Dates: start: 20120820, end: 20121008
  6. PEGINTRON                          /01543001/ [Suspect]
     Indication: CHRONIC HEPATITIS C
     Dosage: 1.5 ?g/kg,weekly
     Route: 058
     Dates: start: 20120424, end: 20120924
  7. PEGINTRON                          /01543001/ [Suspect]
     Dosage: 0.75 ?g/kg, weekly
     Route: 058
     Dates: start: 20121002, end: 20121002
  8. URSO                               /00465701/ [Concomitant]
     Dosage: 600 mg, qd
     Route: 048
     Dates: end: 20120504
  9. GLYCYRON                           /00466401/ [Concomitant]
     Dosage: 6 DF, qd
     Route: 048
     Dates: end: 20120504
  10. CLARITIN                           /00413701/ [Concomitant]
     Dosage: 10 mg, qd
     Route: 048
     Dates: end: 20121008
  11. PARIET [Concomitant]
     Dosage: 10 mg, qd
     Route: 048
     Dates: end: 20121008
  12. RESTAMIN                           /00000401/ [Concomitant]
     Dosage: UNK, prn
     Route: 051
     Dates: start: 20120806

REACTIONS (1)
  - Neutrophil count decreased [Recovered/Resolved]
